FAERS Safety Report 7247312-4 (Version None)
Quarter: 2011Q1

REPORT INFORMATION
  Report Type: 
  Country: None (occurrence: None)
  Receive Date: 20110127
  Receipt Date: 20110124
  Transmission Date: 20110831
  Serious: Yes (Hospitalization)
  Sender: FDA-Public Use
  Company Number: B0695567A

PATIENT
  Sex: Female
  Weight: 58 kg

DRUGS (6)
  1. KARDEGIC [Concomitant]
     Dosage: 75MG PER DAY
     Route: 048
  2. EXELON [Concomitant]
     Dosage: 9.5MG PER DAY
     Route: 023
  3. HEMIGOXINE [Concomitant]
     Dosage: 1TAB PER DAY
     Route: 048
  4. ROVAMYCINE [Concomitant]
     Dosage: 1.5IU6 PER DAY
     Route: 042
     Dates: start: 20110102
  5. AUGMENTIN [Suspect]
     Indication: LUNG DISORDER
     Dosage: 1G THREE TIMES PER DAY
     Route: 048
     Dates: start: 20110103, end: 20110104
  6. CLAMOXYL [Suspect]
     Indication: LUNG DISORDER
     Dosage: 1G THREE TIMES PER DAY
     Route: 048
     Dates: start: 20110104, end: 20110108

REACTIONS (7)
  - CHEILITIS [None]
  - PRURITUS [None]
  - BLOOD CREATININE INCREASED [None]
  - RASH MACULO-PAPULAR [None]
  - TOXIC SKIN ERUPTION [None]
  - RASH [None]
  - ASTHENIA [None]
